FAERS Safety Report 5742854-2 (Version None)
Quarter: 2008Q2

REPORT INFORMATION
  Report Type: 
  Country: None (occurrence: None)
  Receive Date: 20080515
  Receipt Date: 20080515
  Transmission Date: 20081010
  Serious: Yes (Hospitalization)
  Sender: FDA-Public Use
  Company Number: None

PATIENT
  Age: 63 Year
  Sex: Male
  Weight: 71.64 kg

DRUGS (1)
  1. VANCOMYCIN [Suspect]
     Dosage: 1 GM BID IV
     Route: 042
     Dates: start: 20080131, end: 20080131

REACTIONS (4)
  - ANAPHYLACTIC REACTION [None]
  - HYPOTENSION [None]
  - RASH [None]
  - TACHYCARDIA [None]
